FAERS Safety Report 9265148 (Version 1)
Quarter: 2013Q2

REPORT INFORMATION
  Report Type: Spontaneous
  Country: US (occurrence: None)
  Receive Date: 20130430
  Receipt Date: 20130430
  Transmission Date: 20140414
  Serious: Yes (Other)
  Sender: FDA-Public Use
  Company Number: None

PATIENT
  Age: 57 Year
  Sex: Male
  Weight: 123.4 kg

DRUGS (1)
  1. PREDNISONE [Suspect]
     Indication: PAIN
     Dosage: MG OTHER PO
     Route: 048
     Dates: start: 20130424, end: 20130426

REACTIONS (3)
  - Blood glucose increased [None]
  - Dizziness [None]
  - Balance disorder [None]
